FAERS Safety Report 7312051-8 (Version None)
Quarter: 2011Q1

REPORT INFORMATION
  Report Type: 
  Country: None (occurrence: None)
  Receive Date: 20110224
  Receipt Date: 20100524
  Transmission Date: 20110831
  Serious: No
  Sender: FDA-Public Use
  Company Number: US-BRISTOL-MYERS SQUIBB COMPANY-15119282

PATIENT
  Sex: Female

DRUGS (2)
  1. PACLITAXEL [Suspect]
     Indication: CERVIX CARCINOMA
  2. CARBOPLATIN [Suspect]
     Indication: CERVIX CARCINOMA

REACTIONS (1)
  - NEUROPATHY PERIPHERAL [None]
